FAERS Safety Report 9009831 (Version 1)
Quarter: 2013Q1

REPORT INFORMATION
  Report Type: Spontaneous
  Country: US (occurrence: US)
  Receive Date: 20130110
  Receipt Date: 20130110
  Transmission Date: 20140127
  Serious: Yes (Hospitalization)
  Sender: FDA-Public Use
  Company Number: US-BAYER-2013-001508

PATIENT
  Age: 29 Year
  Sex: Female
  Weight: 90.7 kg

DRUGS (31)
  1. GIANVI [Suspect]
  2. YAZ [Suspect]
  3. WELLBUTRIN [Concomitant]
     Indication: SINUSITIS
     Route: 048
  4. WELLBUTRIN [Concomitant]
     Indication: BRONCHITIS
  5. AUGMENTIN [Concomitant]
     Indication: SINUSITIS
     Dosage: 875 MG, BID
     Route: 048
  6. AUGMENTIN [Concomitant]
     Indication: BRONCHITIS
  7. OCEAN MIST [Concomitant]
     Route: 045
  8. ZOLOFT [Concomitant]
  9. LITHIUM [Concomitant]
     Dosage: 300 MG, TID
     Route: 048
  10. NEURONTIN [Concomitant]
     Dosage: 600 MG, TID
     Route: 048
  11. HYDROCHLOROTHIAZIDE [Concomitant]
     Dosage: 25 MG, QD
     Route: 048
  12. BROMOCRIPTINE [Concomitant]
     Dosage: 2.5 MG, DAILY
     Route: 048
  13. ALBUTEROL [Concomitant]
     Dosage: PRN
  14. SEROQUEL [Concomitant]
     Dosage: 50 MG, HS
     Route: 048
  15. MAXALT [Concomitant]
     Indication: HEADACHE
     Dosage: OCCASIONAL
  16. PREDNISONE [Concomitant]
  17. VALTREX [Concomitant]
     Indication: HERPES ZOSTER
     Dosage: Q 8 H TIMES 7 DAYS
  18. PERCOCET [Concomitant]
     Indication: PAIN
     Route: 048
  19. MEDROL [Concomitant]
     Indication: BRONCHITIS
     Route: 048
  20. DOXYCYCLINE [Concomitant]
     Indication: BRONCHITIS
     Route: 048
  21. NEOSYNEPHRINE [Concomitant]
  22. ZOFRAN [Concomitant]
     Indication: NAUSEA
  23. ZOFRAN [Concomitant]
     Indication: VOMITING
  24. DILAUDID [Concomitant]
     Indication: PAIN
  25. TRIPTAN [Concomitant]
  26. PARLODEL [Concomitant]
  27. SERTRALIN [Concomitant]
  28. PEPCID [Concomitant]
  29. FLUDROCORTISONE [Concomitant]
  30. MIDODRINE [Concomitant]
  31. TOPAMAX [Concomitant]

REACTIONS (3)
  - Carotid artery thrombosis [None]
  - Cerebral artery thrombosis [None]
  - Pulmonary embolism [None]
